FAERS Safety Report 8409063-X (Version None)
Quarter: 2012Q2

REPORT INFORMATION
  Report Type: 
  Country: None (occurrence: None)
  Receive Date: 20120604
  Receipt Date: 20120530
  Transmission Date: 20120825
  Serious: Yes (Other)
  Sender: FDA-Public Use
  Company Number: US-ALLERGAN-1205356US

PATIENT
  Age: 46 Year
  Sex: Female

DRUGS (4)
  1. BOTOX COSMETIC [Suspect]
  2. CONTRACEPTIVES NOS [Concomitant]
     Indication: CONTRACEPTION
     Dosage: UNK
  3. BOTOX COSMETIC [Suspect]
     Indication: SKIN WRINKLING
     Dosage: 35 UNITS, SINGLE
     Route: 030
     Dates: start: 20110909, end: 20110909
  4. BOTOX COSMETIC [Suspect]

REACTIONS (2)
  - HEMIPLEGIA [None]
  - CHEST PAIN [None]
